FAERS Safety Report 4639695-6 (Version None)
Quarter: 2005Q2

REPORT INFORMATION
  Report Type: 
  Country: None (occurrence: None)
  Receive Date: 20050406
  Receipt Date: 20050323
  Transmission Date: 20051028
  Serious: Yes (Hospitalization)
  Sender: FDA-Public Use
  Company Number: MK200503-0290-1

PATIENT
  Age: 57 Year
  Sex: Female

DRUGS (8)
  1. NEUTROSPEC [Suspect]
     Indication: INFLAMMATION SCAN
     Dosage: 22 TO 23 MCI, ONCE, IV
     Route: 042
     Dates: start: 20050319, end: 20050319
  2. ALBUTEROL [Concomitant]
  3. ATROVENT [Concomitant]
  4. ENOXAPARIN SODIUM [Concomitant]
  5. LASIX [Concomitant]
  6. SOLU-MEDROL [Concomitant]
  7. LEVAQUIN [Concomitant]
  8. ZOSYN [Concomitant]

REACTIONS (2)
  - LUNG INFILTRATION [None]
  - PROCEDURAL COMPLICATION [None]
